FAERS Safety Report 7176003-3 (Version None)
Quarter: 2010Q4

REPORT INFORMATION
  Report Type: 
  Country: None (occurrence: None)
  Receive Date: 20101215
  Receipt Date: 20101215
  Transmission Date: 20110411
  Serious: Yes (Disabling, Other)
  Sender: FDA-Public Use
  Company Number: None

PATIENT
  Age: 75 Year
  Sex: Female
  Weight: 73.0291 kg

DRUGS (1)
  1. ZITHROMAX [Suspect]
     Indication: DEAFNESS
     Dosage: 250MG AS DIRECTED ORAL
     Route: 048
     Dates: start: 20100308, end: 20100826

REACTIONS (1)
  - DEAFNESS [None]
